FAERS Safety Report 4342790-2 (Version None)
Quarter: 2004Q2

REPORT INFORMATION
  Report Type: 
  Country: None (occurrence: None)
  Receive Date: 20040416
  Receipt Date: 20040401
  Transmission Date: 20050107
  Serious: Yes (Hospitalization)
  Sender: FDA-Public Use
  Company Number: S04-FRA-01589-01

PATIENT
  Age: 68 Year
  Sex: Male

DRUGS (6)
  1. SEROPRAM (CITALOPRAM HYDROCHLORIDE) [Suspect]
     Indication: ANXIETY
     Dosage: 20 MG QD PO
     Route: 048
  2. IMOVANE (ZOPICLONE) [Suspect]
     Indication: SLEEP DISORDER
     Dosage: 7.5 MG QD PO
     Route: 048
  3. CLONAZEPAM [Concomitant]
     Dosage: 0.5 MG
  4. COAPROVEL [Suspect]
     Indication: ESSENTIAL HYPERTENSION
     Dosage: 300 MG QD PO
     Route: 048
  5. VASTAREL (TRIMETAZIDINE HYDROCHLORIDE) [Concomitant]
  6. ALDACTONE [Concomitant]

REACTIONS (5)
  - ANXIETY [None]
  - FALL [None]
  - FAMILY STRESS [None]
  - HEAD INJURY [None]
  - MALAISE [None]
